FAERS Safety Report 23141257 (Version 1)
Quarter: 2023Q4

REPORT INFORMATION
  Report Type: Spontaneous
  Country: US (occurrence: US)
  Receive Date: 20231103
  Receipt Date: 20231103
  Transmission Date: 20240109
  Serious: Yes (Hospitalization)
  Sender: FDA-Public Use
  Company Number: US-ABBVIE-5478998

PATIENT

DRUGS (1)
  1. RINVOQ [Suspect]
     Active Substance: UPADACITINIB
     Indication: Product used for unknown indication
     Route: 048

REACTIONS (10)
  - Thrombosis [Unknown]
  - Joint swelling [Unknown]
  - Pain [Unknown]
  - Hypertension [Unknown]
  - Contusion [Unknown]
  - Dyspnoea [Unknown]
  - Nervousness [Unknown]
  - Fall [Unknown]
  - Peripheral swelling [Unknown]
  - Blood cholesterol increased [Unknown]
